FAERS Safety Report 14838394 (Version 16)
Quarter: 2019Q1

REPORT INFORMATION
  Report Type: Report from Study
  Country: US (occurrence: US)
  Receive Date: 20180502
  Receipt Date: 20190211
  Transmission Date: 20190417
  Serious: Yes (Hospitalization)
  Sender: FDA-Public Use
  Company Number: US-ACTELION-A-US2018-169560

PATIENT
  Age: 48 Year
  Sex: Female
  Weight: 71.66 kg

DRUGS (49)
  1. OPSUMIT [Suspect]
     Active Substance: MACITENTAN
     Indication: PULMONARY HYPERTENSION
     Dosage: 10 MG, QD
     Route: 048
     Dates: start: 201803, end: 20181015
  2. SINGULAIR [Concomitant]
     Active Substance: MONTELUKAST SODIUM
     Dosage: 10 MG, QD
  3. ZOFRAN [Concomitant]
     Active Substance: ONDANSETRON HYDROCHLORIDE
     Dosage: 4 MG, Q12HRS
  4. PANTOPRAZOLE [Concomitant]
     Active Substance: PANTOPRAZOLE
     Dosage: 40 MG, BID
  5. OCULAR LUBRICANT [Concomitant]
  6. FLUTICASONE. [Concomitant]
     Active Substance: FLUTICASONE
     Dosage: 50 MCG / SPRAY
  7. OPSUMIT [Suspect]
     Active Substance: MACITENTAN
     Dosage: 10 MG, UNK
     Route: 048
     Dates: start: 20181116
  8. ORENITRAM [Concomitant]
     Active Substance: TREPROSTINIL
  9. TIKOSYN [Concomitant]
     Active Substance: DOFETILIDE
     Dosage: 125 MCG, BID
  10. LORATADINE. [Concomitant]
     Active Substance: LORATADINE
     Dosage: 10 MG, QD
  11. METOPROLOL SUCCINATE. [Concomitant]
     Active Substance: METOPROLOL SUCCINATE
     Dosage: 50 MG, QAM
  12. METOPROLOL SUCCINATE. [Concomitant]
     Active Substance: METOPROLOL SUCCINATE
     Dosage: 25 MG, QPM
  13. MYCOPHENOLATE MOFETIL. [Concomitant]
     Active Substance: MYCOPHENOLATE MOFETIL
     Dosage: 500 MG, BID
  14. POTASSIUM CHLORIDE. [Concomitant]
     Active Substance: POTASSIUM CHLORIDE
     Dosage: 40 MEQ, QID
  15. OXYGEN. [Concomitant]
     Active Substance: OXYGEN
  16. INSULIN LISPRO [Concomitant]
     Active Substance: INSULIN LISPRO
  17. MONTELUKAST [Concomitant]
     Active Substance: MONTELUKAST SODIUM
     Dosage: 10 MG, QPM
     Route: 048
  18. COLCRYS [Concomitant]
     Active Substance: COLCHICINE
  19. AMLODIPINE [Concomitant]
     Active Substance: AMLODIPINE BESYLATE
     Dosage: 5 MG, UNK
  20. FERROUS SULFATE. [Concomitant]
     Active Substance: FERROUS SULFATE
     Dosage: 325 MG, TID
  21. FLONASE [Concomitant]
     Active Substance: FLUTICASONE PROPIONATE
  22. HUMULIN N [Concomitant]
     Active Substance: INSULIN HUMAN
     Dosage: 15 U, QD
  23. ACETAMINOPHEN. [Concomitant]
     Active Substance: ACETAMINOPHEN
  24. ENOXAPARIN [Concomitant]
     Active Substance: ENOXAPARIN
     Dosage: 40 MG, UNK
     Route: 058
  25. NYSTATIN. [Concomitant]
     Active Substance: NYSTATIN
     Route: 061
  26. DOXYCYCLINE HYCLATE. [Concomitant]
     Active Substance: DOXYCYCLINE HYCLATE
     Dosage: 100 MG, UNK
  27. LEVOFLOXACIN. [Concomitant]
     Active Substance: LEVOFLOXACIN
     Dosage: 500 MG, UNK
  28. REMODULIN [Concomitant]
     Active Substance: TREPROSTINIL
     Dosage: UNK
     Route: 065
  29. PROAIR HFA [Concomitant]
     Active Substance: ALBUTEROL SULFATE
     Dosage: UNK
  30. CHOLECALCIFEROL [Concomitant]
     Active Substance: CHOLECALCIFEROL
     Dosage: 2000 IU, QD
  31. IPRATROPIUM BROMIDE AND ALBUTEROL SULFATE [Concomitant]
     Active Substance: ALBUTEROL SULFATE\IPRATROPIUM BROMIDE
  32. REMODULIN [Concomitant]
     Active Substance: TREPROSTINIL
     Dosage: 74 NG/KG, PER MIN
     Route: 065
     Dates: start: 20181008
  33. BUDESONIDE W/FORMOTEROL [Concomitant]
     Active Substance: BUDESONIDE\FORMOTEROL
     Dosage: 2 PUFFS, BID
  34. MAGNESIUM OXIDE. [Concomitant]
     Active Substance: MAGNESIUM OXIDE
     Dosage: 600 MG, QD
  35. SPIRONOLACTONE. [Concomitant]
     Active Substance: SPIRONOLACTONE
     Dosage: 25 MG, QD
  36. TORSEMIDE. [Concomitant]
     Active Substance: TORSEMIDE
     Dosage: 40 MG, BID
  37. DOFETILIDE. [Concomitant]
     Active Substance: DOFETILIDE
  38. GUAIFENESIN. [Concomitant]
     Active Substance: GUAIFENESIN
     Dosage: 600 MG, Q12HRS
     Route: 048
  39. DUONEB [Concomitant]
     Active Substance: ALBUTEROL SULFATE\IPRATROPIUM BROMIDE
     Dosage: UNK
  40. ATORVASTATIN [Concomitant]
     Active Substance: ATORVASTATIN
     Dosage: 40 MG, QPM
  41. PERIDEX [Concomitant]
     Active Substance: CHLORHEXIDINE GLUCONATE
     Dosage: 15 ML, BID
  42. SYMBICORT [Concomitant]
     Active Substance: BUDESONIDE\FORMOTEROL FUMARATE DIHYDRATE
     Dosage: 160 MCG-4.5 MCG/INH (2PUFFS)
  43. REVATIO [Concomitant]
     Active Substance: SILDENAFIL CITRATE
     Dosage: 40 MG, TID
  44. EPOPROSTENOL TEVA [Concomitant]
  45. NOVOLOG [Concomitant]
     Active Substance: INSULIN ASPART
     Dosage: 12 U, UNK
  46. ALBUTEROL. [Concomitant]
     Active Substance: ALBUTEROL
  47. WARFARIN SODIUM. [Concomitant]
     Active Substance: WARFARIN SODIUM
  48. PRAVASTATIN SODIUM. [Concomitant]
     Active Substance: PRAVASTATIN SODIUM
     Dosage: 20 MG, UNK
  49. LOSARTAN POTASSIUM. [Concomitant]
     Active Substance: LOSARTAN POTASSIUM
     Dosage: 50 MG, UNK

REACTIONS (32)
  - Pneumonia [Unknown]
  - Productive cough [Unknown]
  - Viral infection [Unknown]
  - Oedema [Recovering/Resolving]
  - Dyspnoea [Recovering/Resolving]
  - Fluid overload [Recovering/Resolving]
  - Parainfluenzae virus infection [Unknown]
  - Fluid retention [Unknown]
  - Rhinovirus infection [Unknown]
  - Leukocytosis [Recovering/Resolving]
  - Cough [Recovering/Resolving]
  - Oxygen saturation decreased [Unknown]
  - Chronic respiratory failure [Unknown]
  - Heart rate increased [Unknown]
  - Pain in jaw [Unknown]
  - Amnesia [Unknown]
  - Hypokalaemia [Recovered/Resolved]
  - Contusion [Unknown]
  - Product dose omission [Recovered/Resolved]
  - Laboratory test abnormal [Unknown]
  - Dyspnoea exertional [Unknown]
  - Lactic acidosis [Recovering/Resolving]
  - Headache [Unknown]
  - Disease progression [Unknown]
  - Unevaluable event [Unknown]
  - Renal failure [Unknown]
  - Right ventricular failure [Unknown]
  - Electrolyte imbalance [Unknown]
  - Pulmonary hypertension [Unknown]
  - Fatigue [Unknown]
  - Medication error [Unknown]
  - Atrial fibrillation [Unknown]

NARRATIVE: CASE EVENT DATE: 20181005
